FAERS Safety Report 7387953-7 (Version None)
Quarter: 2011Q2

REPORT INFORMATION
  Report Type: 
  Country: None (occurrence: None)
  Receive Date: 20110401
  Receipt Date: 20110321
  Transmission Date: 20111010
  Serious: Yes (Hospitalization)
  Sender: FDA-Public Use
  Company Number: AR-BIOGENIDEC-2011BI008452

PATIENT
  Age: 29 Year
  Sex: Female

DRUGS (3)
  1. AVONEX [Suspect]
     Indication: MULTIPLE SCLEROSIS
     Route: 030
     Dates: start: 20090401
  2. DELTISONA B [Concomitant]
     Route: 048
  3. BREXELL PLUS [Concomitant]
     Indication: OSTEOPOROSIS
     Route: 048

REACTIONS (1)
  - OVARIAN CYST [None]
